FAERS Safety Report 8595041-7 (Version None)
Quarter: 2012Q3

REPORT INFORMATION
  Report Type: 
  Country: None (occurrence: None)
  Receive Date: 20120815
  Receipt Date: 20120806
  Transmission Date: 20120928
  Serious: Yes (Other)
  Sender: FDA-Public Use
  Company Number: BE-ASTRAZENECA-2012SE56462

PATIENT
  Sex: Male

DRUGS (3)
  1. BROMAZEPAM [Concomitant]
  2. ZOLPIDEM [Concomitant]
  3. ZOLADEX [Suspect]
     Route: 058

REACTIONS (1)
  - DERMATITIS [None]
